FAERS Safety Report 9417209 (Version 1)
Quarter: 2013Q3

REPORT INFORMATION
  Report Type: Spontaneous
  Country: US (occurrence: US)
  Receive Date: 20130724
  Receipt Date: 20130724
  Transmission Date: 20140515
  Serious: No
  Sender: FDA-Public Use
  Company Number: US-PFIZER INC-2013213522

PATIENT
  Age: 51 Year
  Sex: Female

DRUGS (5)
  1. XELJANZ [Suspect]
     Indication: RHEUMATOID ARTHRITIS
     Dosage: 5 MG, 2X/DAY
     Route: 048
     Dates: start: 201306
  2. ACIPHEX [Concomitant]
     Dosage: UNK
  3. LEXAPRO [Concomitant]
     Dosage: UNK
  4. FLONASE [Concomitant]
     Dosage: UNK
  5. WELLBUTRIN [Concomitant]
     Dosage: UNK

REACTIONS (1)
  - Sinusitis [Recovering/Resolving]
